FAERS Safety Report 10592609 (Version 2)
Quarter: 2014Q4

REPORT INFORMATION
  Report Type: Spontaneous
  Country: US (occurrence: US)
  Receive Date: 20141119
  Receipt Date: 20141216
  Transmission Date: 20150529
  Serious: No
  Sender: FDA-Public Use
  Company Number: US-PFIZER INC-2014317785

PATIENT
  Age: 71 Year
  Sex: Male

DRUGS (4)
  1. CHANTIX [Suspect]
     Active Substance: VARENICLINE TARTRATE
     Dosage: TOOK 1 TO 1.5 DF, DAILY
     Dates: start: 2014, end: 2014
  2. CHANTIX [Suspect]
     Active Substance: VARENICLINE TARTRATE
     Dosage: 0.5 DF, DAILY 5TH 6TH WEEK
     Dates: start: 2014
  3. CHANTIX [Suspect]
     Active Substance: VARENICLINE TARTRATE
     Indication: SMOKING CESSATION THERAPY
     Dosage: 2 DF, DAILY
     Dates: start: 20141028, end: 2014
  4. CHANTIX [Suspect]
     Active Substance: VARENICLINE TARTRATE
     Dosage: 1 DF, DAILY
     Dates: start: 2014, end: 2014

REACTIONS (2)
  - Depressed mood [Recovering/Resolving]
  - Intentional product misuse [Unknown]
